FAERS Safety Report 5719173-3 (Version None)
Quarter: 2008Q2

REPORT INFORMATION
  Report Type: 
  Country: None (occurrence: None)
  Receive Date: 20080428
  Receipt Date: 20080422
  Transmission Date: 20081010
  Serious: Yes (Other)
  Sender: FDA-Public Use
  Company Number: US-BAYER-200816244NA

PATIENT
  Age: 36 Year
  Sex: Female
  Weight: 91 kg

DRUGS (1)
  1. MIRENA [Suspect]
     Indication: CONTRACEPTION
     Route: 015
     Dates: start: 20080227, end: 20080325

REACTIONS (3)
  - COMPLICATION OF DEVICE INSERTION [None]
  - DEVICE FAILURE [None]
  - UTERINE RUPTURE [None]
